FAERS Safety Report 7229266-X (Version None)
Quarter: 2011Q1

REPORT INFORMATION
  Report Type: 
  Country: None (occurrence: None)
  Receive Date: 20110117
  Receipt Date: 20110106
  Transmission Date: 20110831
  Serious: Yes (Hospitalization, Other)
  Sender: FDA-Public Use
  Company Number: US-ELI_LILLY_AND_COMPANY-US201007000397

PATIENT
  Sex: Female
  Weight: 78.912 kg

DRUGS (16)
  1. VITAMIN D [Concomitant]
     Dosage: 1000 U, 2/D
     Route: 048
  2. LOVAZA [Concomitant]
     Dosage: 2 G, 2/D
     Route: 048
  3. METOPROLOL TARTRATE [Concomitant]
     Dosage: 25 MG, 2/D
     Route: 048
  4. FORTEO [Suspect]
     Dosage: 20 UG, DAILY (1/D)
     Route: 058
  5. LISINOPRIL [Concomitant]
     Dosage: 20 MG, DAILY (1/D)
     Route: 048
  6. ZOCOR [Concomitant]
     Dosage: 40 MG, DAILY (1/D)
     Route: 048
  7. OXYGEN [Concomitant]
  8. LASIX [Concomitant]
     Dosage: 40 MG, DAILY (1/D)
     Route: 048
  9. CITALOPRAM HYDROBROMIDE [Concomitant]
     Dosage: 20 MG, DAILY (1/D)
     Route: 048
  10. CALCIUM +VIT D [Concomitant]
     Dosage: 600 MG, DAILY (1/D)
     Route: 048
  11. FORTEO [Suspect]
     Dosage: 20 UG, DAILY (1/D)
     Route: 058
  12. MULTI-VITAMIN [Concomitant]
     Dosage: UNK, DAILY (1/D)
     Route: 048
  13. TRAMADOL HCL [Concomitant]
     Dosage: 509 MG, AS NEEDED
  14. FORTEO [Suspect]
     Indication: OSTEOPOROSIS
     Dosage: 20 UG, DAILY (1/D)
     Route: 058
     Dates: start: 20090828
  15. VERAPAMIL HCL [Concomitant]
     Dosage: 240 MG, 2/D
     Route: 048
  16. ASPIRIN [Concomitant]
     Dosage: 81 MG, DAILY (1/D)
     Route: 048

REACTIONS (11)
  - FALL [None]
  - MUSCULOSKELETAL PAIN [None]
  - SKIN INJURY [None]
  - PAIN [None]
  - SCAB [None]
  - DEVICE DISLOCATION [None]
  - MUSCULAR WEAKNESS [None]
  - THERMAL BURN [None]
  - ASTHENIA [None]
  - PAIN IN EXTREMITY [None]
  - ARTHRALGIA [None]
